FAERS Safety Report 9997644 (Version 1)
Quarter: 2014Q1

REPORT INFORMATION
  Report Type: Spontaneous
  Country: US (occurrence: None)
  Receive Date: 20140225
  Receipt Date: 20140225
  Transmission Date: 20141002
  Serious: Yes (Other)
  Sender: FDA-Public Use
  Company Number: 2013-158

PATIENT
  Age: 58 Year
  Sex: Female

DRUGS (6)
  1. PRIALT [Suspect]
     Indication: PAIN
     Route: 037
     Dates: start: 20120725
  2. PRIALT [Suspect]
     Indication: NEURITIS
     Route: 037
     Dates: start: 20120725
  3. EFFEXOR (VENLAFAXINE HYDROCHLORIDE) [Concomitant]
  4. ATENOLOL (ATENOLOL) [Concomitant]
  5. NEURONTIN (GABAPENTIN) [Concomitant]
  6. SKELAXIN (METAXALONE) [Concomitant]

REACTIONS (6)
  - Hallucination, auditory [None]
  - Paraesthesia oral [None]
  - Tinnitus [None]
  - Bruxism [None]
  - Oral discomfort [None]
  - Dysgeusia [None]
